FAERS Safety Report 9025537 (Version 1)
Quarter: 2013Q1

REPORT INFORMATION
  Report Type: Spontaneous
  Country: JP (occurrence: JP)
  Receive Date: 20130122
  Receipt Date: 20130122
  Transmission Date: 20140127
  Serious: Yes (Other)
  Sender: FDA-Public Use
  Company Number: JP-ROCHE-1181635

PATIENT
  Age: 7 Decade
  Sex: Female

DRUGS (2)
  1. XELODA [Suspect]
     Indication: COLON CANCER
     Route: 048
     Dates: start: 201204, end: 20121225
  2. ELPLAT [Concomitant]
     Indication: COLON CANCER
     Route: 041
     Dates: start: 201204, end: 20121211

REACTIONS (3)
  - Diarrhoea [Not Recovered/Not Resolved]
  - Renal failure acute [Not Recovered/Not Resolved]
  - Decreased appetite [Not Recovered/Not Resolved]
